FAERS Safety Report 7221302-X (Version None)
Quarter: 2011Q1

REPORT INFORMATION
  Report Type: 
  Country: None (occurrence: None)
  Receive Date: 20110112
  Receipt Date: 20110106
  Transmission Date: 20110831
  Serious: Yes (Death, Hospitalization, Other)
  Sender: FDA-Public Use
  Company Number: PHHY2010CA81027

PATIENT
  Sex: Female

DRUGS (26)
  1. CLOZARIL [Suspect]
     Dosage: UNK
     Route: 048
     Dates: start: 19940104, end: 20100802
  2. VENTOLIN [Concomitant]
     Dosage: UNK
     Dates: start: 20060413
  3. VITAMIN D [Concomitant]
     Dosage: UNK
     Dates: start: 20051216
  4. HYDROMORPHONE HCL [Concomitant]
     Dosage: 09 MG, BID
     Route: 048
  5. VITAMIN B-12 [Concomitant]
     Dosage: 1000 UG, QD
  6. SERTRALINE HYDROCHLORIDE [Concomitant]
     Dosage: UNK
     Dates: start: 20031020
  7. QUININE SULFATE [Concomitant]
     Dosage: 300 MG, QHS
  8. MOTILIUM [Concomitant]
     Dosage: 10 UNK, UNK
  9. DIMENHYDRINATE [Concomitant]
     Dosage: 50 MG AS DIRECTED
     Dates: start: 20040223
  10. PLAVIX [Concomitant]
     Dosage: UNK
     Dates: start: 20060220
  11. FENOFIBRATE [Concomitant]
     Dosage: 200 MG, QD
  12. NITROGLYCERIN [Concomitant]
     Dosage: UNK
     Dates: start: 20031020
  13. ASPIRIN [Concomitant]
     Dosage: 81 MG, QD
     Route: 048
     Dates: start: 20080226
  14. LYRICA [Concomitant]
     Dosage: 50 MG, QHS
     Route: 048
     Dates: start: 20090319
  15. FLOVENT [Concomitant]
     Dosage: 2 DF, BID
     Dates: start: 20070802
  16. WESTCORT [Concomitant]
     Dosage: 50 G, BID
     Dates: start: 20080103
  17. COLACE [Concomitant]
     Dosage: 100 MG, BID
     Route: 048
     Dates: start: 20090720
  18. FLEXERIL [Concomitant]
     Dosage: 10 MG, BID
     Route: 048
  19. PANTOLOC [Concomitant]
     Dosage: 40 MG, QD
     Dates: start: 20090423
  20. CALCIUM [Concomitant]
     Dosage: UNK
     Dates: start: 20051216
  21. CLONAZEPAM [Concomitant]
     Dosage: 0.5 MG, BID
     Dates: start: 20031020
  22. PHAZYME [Concomitant]
     Dosage: 100 UNK, UNK
     Dates: start: 20040809
  23. HYDROMORPHONE HYDROCHLORIDE [Concomitant]
     Indication: PAIN
     Dosage: 02 MG, TID
     Dates: start: 20090330
  24. ZITHROMAX [Concomitant]
     Dosage: UNK
     Dates: start: 20100618
  25. SPIRIVA [Concomitant]
     Dosage: UNK
     Dates: start: 20070511
  26. SENOKOT [Concomitant]
     Dosage: UNK
     Dates: start: 20031020

REACTIONS (17)
  - CHOLELITHIASIS [None]
  - SOMNOLENCE [None]
  - IRRITABLE BOWEL SYNDROME [None]
  - GASTRIC POLYPS [None]
  - ABSCESS [None]
  - FALL [None]
  - RESPIRATORY FAILURE [None]
  - MYOCARDIAL INFARCTION [None]
  - CONFUSIONAL STATE [None]
  - CHRONIC OBSTRUCTIVE PULMONARY DISEASE [None]
  - PNEUMONIA [None]
  - ENDOMETRIAL HYPERPLASIA [None]
  - ACANTHOSIS [None]
  - OEDEMA PERIPHERAL [None]
  - ORTHOSTATIC HYPOTENSION [None]
  - ASTHMA [None]
  - ULCER [None]
